FAERS Safety Report 7634680-4 (Version None)
Quarter: 2011Q3

REPORT INFORMATION
  Report Type: 
  Country: None (occurrence: None)
  Receive Date: 20110725
  Receipt Date: 20081226
  Transmission Date: 20111222
  Serious: Yes (Death, Other)
  Sender: FDA-Public Use
  Company Number: US-BAYER-200841441NA

PATIENT
  Age: 57 Year
  Sex: Female
  Weight: 91 kg

DRUGS (19)
  1. LIPITOR [Concomitant]
     Dosage: 20 MG/24HR, UNK
  2. ETOMIDATE [Concomitant]
     Dosage: 20 MG, UNK
     Route: 042
     Dates: start: 20060718
  3. COREG [Concomitant]
     Dosage: UNK UNK, TID
  4. PENICILLIN [Concomitant]
  5. ANCEF [Concomitant]
     Dosage: 2000
     Route: 042
     Dates: start: 20060718
  6. LIDOCAINE [Concomitant]
     Dosage: 100 MG, UNK
     Route: 042
     Dates: start: 20060718
  7. GENTAMYCIN SULFATE [Concomitant]
     Dosage: 3 MG/ML, UNK
  8. VERSED [Concomitant]
     Dosage: 5 MG, UNK
     Route: 042
     Dates: start: 20060718
  9. DECADRON [Concomitant]
     Dosage: UNK
     Route: 042
     Dates: start: 20060718
  10. PROTAMINE SULFATE [Concomitant]
     Dosage: 250 MG, UNK
     Route: 042
     Dates: start: 20060718
  11. PHENYLEPHRINE HCL [Concomitant]
     Dosage: 3 ML, UNK
     Route: 042
     Dates: start: 20060718
  12. TRASYLOL [Suspect]
     Indication: CORONARY ARTERY BYPASS
     Dosage: 200 ML, LOADING DOSE
     Route: 042
     Dates: start: 20060719
  13. TOBRADEX [Concomitant]
  14. PEPCID [Concomitant]
     Dosage: 20 MG, UNK
     Route: 042
     Dates: start: 20060718
  15. NORVASC [Concomitant]
     Dosage: 5 MG/24HR, UNK
  16. ANECTINE [Concomitant]
     Dosage: 140 MG, UNK
     Route: 042
     Dates: start: 20060718
  17. HEPARIN [Concomitant]
     Dosage: 22500 U, UNK
     Route: 042
     Dates: start: 20060718
  18. TRASYLOL [Suspect]
     Dosage: 325 ML
     Route: 042
     Dates: start: 20060718
  19. FRESH FROZEN PLASMA [Concomitant]
     Dosage: 2 U, UNK
     Route: 042
     Dates: start: 20060719

REACTIONS (13)
  - RENAL INJURY [None]
  - HEPATIC FAILURE [None]
  - RENAL IMPAIRMENT [None]
  - FEAR [None]
  - PAIN [None]
  - STRESS [None]
  - UNEVALUABLE EVENT [None]
  - MULTI-ORGAN FAILURE [None]
  - DEATH [None]
  - CARDIAC FAILURE [None]
  - EMOTIONAL DISTRESS [None]
  - ANXIETY [None]
  - RENAL FAILURE [None]
